FAERS Safety Report 9937382 (Version 2)
Quarter: 2014Q1

REPORT INFORMATION
  Report Type: Report from Study
  Country: US (occurrence: US)
  Receive Date: 20140303
  Receipt Date: 20140303
  Transmission Date: 20141002
  Serious: No
  Sender: FDA-Public Use
  Company Number: US-ABBVIE-13P-163-1168124-00

PATIENT
  Age: 30 Year
  Sex: Male

DRUGS (1)
  1. HUMIRA [Suspect]
     Indication: CROHN^S DISEASE
     Dates: end: 20131030

REACTIONS (3)
  - Abdominal pain [Recovering/Resolving]
  - Abscess intestinal [Recovering/Resolving]
  - Infection [Recovering/Resolving]
